FAERS Safety Report 4643325-7 (Version None)
Quarter: 2005Q2

REPORT INFORMATION
  Report Type: 
  Country: None (occurrence: None)
  Receive Date: 20050422
  Receipt Date: 20050404
  Transmission Date: 20051028
  Serious: Yes (Hospitalization, Other)
  Sender: FDA-Public Use
  Company Number: 17657

PATIENT
  Age: 86 Year
  Sex: Female
  Weight: 47.6277 kg

DRUGS (2)
  1. DAUNORUBICIN HYDROCHLORIDE [Suspect]
     Indication: ACUTE MYELOID LEUKAEMIA
     Dosage: 45 MG/M2 OTHER
     Dates: start: 20041112
  2. NEUPOGEN [Concomitant]

REACTIONS (8)
  - ACUTE PULMONARY OEDEMA [None]
  - EJECTION FRACTION DECREASED [None]
  - FEBRILE NEUTROPENIA [None]
  - FLUID OVERLOAD [None]
  - HEART RATE INCREASED [None]
  - PALPITATIONS [None]
  - PLATELET COUNT DECREASED [None]
  - STAPHYLOCOCCAL SEPSIS [None]
